FAERS Safety Report 16233719 (Version 1)
Quarter: 2019Q2

REPORT INFORMATION
  Report Type: Spontaneous
  Country: AT (occurrence: AT)
  Receive Date: 20190424
  Receipt Date: 20190424
  Transmission Date: 20190711
  Serious: Yes (Life-Threatening)
  Sender: FDA-Public Use
  Company Number: AT-JNJFOC-20190433206

PATIENT
  Age: 71 Year
  Sex: Male

DRUGS (4)
  1. OLEOVIT D3 [Concomitant]
     Active Substance: CHOLECALCIFEROL
     Route: 048
  2. FOLSAN [Concomitant]
     Active Substance: FOLIC ACID
     Route: 065
  3. SIMPONI [Suspect]
     Active Substance: GOLIMUMAB
     Indication: RHEUMATOID ARTHRITIS
     Route: 058
     Dates: start: 201410, end: 201904
  4. EBETREXAT [Concomitant]
     Active Substance: METHOTREXATE SODIUM
     Indication: RHEUMATOID ARTHRITIS
     Route: 048
     Dates: start: 2002

REACTIONS (2)
  - Lymphocytic lymphoma [Not Recovered/Not Resolved]
  - Paraproteinaemia [Not Recovered/Not Resolved]

NARRATIVE: CASE EVENT DATE: 201902
